FAERS Safety Report 5079167-0 (Version None)
Quarter: 2006Q3

REPORT INFORMATION
  Report Type: 
  Country: None (occurrence: None)
  Receive Date: 20060814
  Receipt Date: 20060726
  Transmission Date: 20061208
  Serious: Yes (Life-Threatening, Hospitalization)
  Sender: FDA-Public Use
  Company Number: JP-JPN-A200602834

PATIENT
  Age: 51 Year
  Sex: Male
  Weight: 61 kg

DRUGS (8)
  1. PAXIL [Suspect]
     Indication: DEPRESSION
     Route: 048
     Dates: end: 20060713
  2. HIRNAMIN [Concomitant]
     Route: 065
  3. AMOBAN [Concomitant]
     Route: 065
  4. TINELAC [Concomitant]
     Route: 065
  5. BEZATOL SR [Concomitant]
     Route: 065
  6. CONSTAN [Concomitant]
     Route: 065
  7. DESYREL [Concomitant]
     Route: 065
  8. FLUIDS [Concomitant]

REACTIONS (3)
  - DELUSION [None]
  - DRUG WITHDRAWAL SYNDROME [None]
  - SUICIDAL IDEATION [None]
